FAERS Safety Report 19502715 (Version 2)
Quarter: 2021Q3

REPORT INFORMATION
  Report Type: Report from Study
  Country: UA (occurrence: UA)
  Receive Date: 20210707
  Receipt Date: 20210817
  Transmission Date: 20211014
  Serious: Yes (Death, Hospitalization, Other)
  Sender: FDA-Public Use
  Company Number: UA-KARYOPHARM-2021KPT000864

PATIENT
  Age: 60 Year
  Sex: Female

DRUGS (15)
  1. BORTEZOMIB. [Suspect]
     Active Substance: BORTEZOMIB
     Indication: PLASMA CELL MYELOMA
     Dosage: 1.3 MG/M2, WEEKLY
     Route: 058
     Dates: start: 20180911, end: 20190423
  2. DEXAMETHASONE. [Suspect]
     Active Substance: DEXAMETHASONE
     Indication: PLASMA CELL MYELOMA
     Dosage: 20 MG, 2X/WEEK
     Route: 048
     Dates: start: 20180911, end: 20190313
  3. ONDASETRON [ONDANSETRON] [Concomitant]
     Active Substance: ONDANSETRON
     Indication: PROPHYLAXIS
     Dosage: 8 MG BID FOR SELINEXOR DOSING DAY
     Route: 048
     Dates: start: 20191001, end: 20210615
  4. SELINEXOR [Suspect]
     Active Substance: SELINEXOR
     Indication: PLASMA CELL MYELOMA
     Dosage: 100 MG, WEEKLY
     Route: 048
     Dates: start: 20180911, end: 20190123
  5. SELINEXOR [Suspect]
     Active Substance: SELINEXOR
     Dosage: 60 MG, WEEKLY
     Route: 048
     Dates: start: 20190409, end: 20210622
  6. DEXAMETHASONE. [Suspect]
     Active Substance: DEXAMETHASONE
     Dosage: 10 MG, 2X/WEEK
     Route: 048
     Dates: start: 20200602, end: 20210716
  7. MOXIFLOXACIN. [Concomitant]
     Active Substance: MOXIFLOXACIN
     Indication: PNEUMONIA
     Dosage: 400 MG, QD
     Route: 048
     Dates: start: 20210525, end: 20210531
  8. BROMHEXIN [Concomitant]
     Active Substance: BROMHEXINE
     Indication: PNEUMONIA
     Dosage: 1 DOSAGE FORM (TABLET), TID
     Route: 048
     Dates: start: 20210525, end: 20210531
  9. FOLIC ACID. [Concomitant]
     Active Substance: FOLIC ACID
     Indication: ANAEMIA
     Dosage: 5 MG, QD
     Route: 048
     Dates: start: 20210622, end: 20210703
  10. BORTEZOMIB. [Suspect]
     Active Substance: BORTEZOMIB
     Dosage: 1 MG/M2, WEEKLY
     Route: 058
     Dates: start: 20190502, end: 20210622
  11. ATORVASTATIN [Concomitant]
     Active Substance: ATORVASTATIN
     Indication: PROPHYLAXIS
     Dosage: 20 MG, QD
     Route: 048
     Dates: start: 20210421, end: 20210703
  12. ACETYLSALICYLIC ACID [Concomitant]
     Active Substance: ASPIRIN
     Indication: PROPHYLAXIS
     Dosage: 75 MG, QD
     Route: 048
     Dates: start: 20210421, end: 20210703
  13. TARDYFERON [Concomitant]
     Active Substance: FERROUS SULFATE
     Indication: ANAEMIA
     Dosage: 1 DOSAGE FORM (TABLET), BID
     Route: 048
     Dates: start: 20210601, end: 20210703
  14. REVOLADE [Concomitant]
     Active Substance: ELTROMBOPAG OLAMINE
     Indication: THROMBOCYTOPENIA
     Dosage: 50 MG, QD
     Route: 048
     Dates: start: 20210622, end: 20210703
  15. ACYCLOVIR [ACICLOVIR] [Concomitant]
     Active Substance: ACYCLOVIR
     Indication: PROPHYLAXIS
     Dosage: 400 MG, BID
     Route: 048
     Dates: start: 20200923, end: 20210703

REACTIONS (2)
  - Anaemia [Fatal]
  - Thrombocytopenia [Not Recovered/Not Resolved]

NARRATIVE: CASE EVENT DATE: 20210622
